FAERS Safety Report 7491093-6 (Version None)
Quarter: 2011Q2

REPORT INFORMATION
  Report Type: 
  Country: None (occurrence: None)
  Receive Date: 20110519
  Receipt Date: 20110506
  Transmission Date: 20111010
  Serious: Yes (Death, Hospitalization)
  Sender: FDA-Public Use
  Company Number: US-ROCHE-776360

PATIENT
  Sex: Male
  Weight: 62.1 kg

DRUGS (18)
  1. FOLIC ACID [Concomitant]
  2. BEVACIZUMAB [Suspect]
     Indication: NEUROENDOCRINE CARCINOMA
     Dosage: LAST DOSE PRIOR TO SAE: 16 MAR 2011.
     Route: 042
     Dates: start: 20110124
  3. ASPIRIN [Concomitant]
     Indication: CARDIOVASCULAR EVENT PROPHYLAXIS
  4. VITAMIN B-12 [Concomitant]
  5. OCTREOTIDE ACETATE [Suspect]
     Indication: NEUROENDOCRINE CARCINOMA
     Dosage: LAST DOSE PRIOR TO SAE: 23 FEB 2011.
     Route: 030
     Dates: start: 20110124
  6. NEXIUM [Concomitant]
  7. VERPAMIL HCL [Concomitant]
     Indication: HYPERTENSION
  8. BENICAR [Concomitant]
     Indication: HYPERTENSION
  9. PERTUZUMAB [Suspect]
     Indication: NEUROENDOCRINE CARCINOMA
     Dosage: LAST DOSE PRIOR TO SAE: 16 MAR 2011.
     Route: 042
     Dates: start: 20110124
  10. LAMISIL [Concomitant]
     Indication: FUNGAL INFECTION
     Dates: end: 20110420
  11. VITAMIN D2 [Concomitant]
  12. LORTAB [Concomitant]
     Indication: ANALGESIC THERAPY
  13. OXYCODONE HCL [Concomitant]
     Indication: ANALGESIC THERAPY
  14. BETAMETHASONE [Concomitant]
     Route: 061
     Dates: start: 20110301
  15. LOVASTATIN [Concomitant]
  16. PLAVIX [Concomitant]
     Indication: THROMBOSIS PROPHYLAXIS
     Dates: start: 20110101
  17. DIPHENOXYLATE [Concomitant]
  18. ZOFRAN [Concomitant]
     Indication: NAUSEA

REACTIONS (2)
  - ABDOMINAL PAIN [None]
  - RESPIRATORY FAILURE [None]
